FAERS Safety Report 17558511 (Version 1)
Quarter: 2020Q1

REPORT INFORMATION
  Report Type: Other
  Country: US (occurrence: US)
  Receive Date: 20200318
  Receipt Date: 20200318
  Transmission Date: 20200409
  Serious: Yes (Hospitalization, Other)
  Sender: FDA-Public Use
  Company Number: US-C B FLEET CO INC-202003-US-001041

PATIENT
  Age: 35 Year
  Sex: Male

DRUGS (2)
  1. GERD MEDICATION [Concomitant]
  2. CALCIUM CARBONATE. [Suspect]
     Active Substance: CALCIUM CARBONATE
     Indication: GASTROOESOPHAGEAL REFLUX DISEASE
     Dosage: 7-8 TABLETS OF CALCIUM CARBONATE SINCE LAST 3 WEEKS
     Route: 048

REACTIONS (6)
  - Dry skin [Recovered/Resolved]
  - Pancreatitis [Recovered/Resolved]
  - Confusional state [Recovered/Resolved]
  - Pollakiuria [Recovered/Resolved]
  - Fatigue [Recovered/Resolved]
  - Decreased appetite [Recovered/Resolved]
